FAERS Safety Report 11702537 (Version 1)
Quarter: 2015Q4

REPORT INFORMATION
  Report Type: Spontaneous
  Country: CA (occurrence: CA)
  Receive Date: 20151105
  Receipt Date: 20151105
  Transmission Date: 20160304
  Serious: Yes (Other)
  Sender: FDA-Public Use
  Company Number: CA-TEVA-605753ACC

PATIENT
  Sex: Female
  Weight: 49.94 kg

DRUGS (3)
  1. CITALOPRAM [Suspect]
     Active Substance: CITALOPRAM HYDROBROMIDE
     Indication: POST-TRAUMATIC STRESS DISORDER
     Dosage: 20 MILLIGRAM DAILY;
     Route: 048
  2. FOLIC ACID. [Concomitant]
     Active Substance: FOLIC ACID
  3. ZOPICLONE [Concomitant]
     Active Substance: ZOPICLONE

REACTIONS (15)
  - Dehydration [Recovered/Resolved]
  - Paraesthesia [Recovered/Resolved]
  - Speech disorder [Recovered/Resolved]
  - Tinnitus [Recovered/Resolved]
  - Asthenia [Recovered/Resolved]
  - Glare [Recovered/Resolved]
  - Hypotension [Recovered/Resolved]
  - Muscle spasms [Recovered/Resolved]
  - Hyperhidrosis [Recovered/Resolved]
  - Chest pain [Recovered/Resolved]
  - Muscle atrophy [Recovered/Resolved]
  - Thirst [Recovered/Resolved]
  - Seizure [Recovered/Resolved]
  - Blindness transient [Recovered/Resolved]
  - Deafness [Recovered/Resolved]
